FAERS Safety Report 18511323 (Version 2)
Quarter: 2020Q4

REPORT INFORMATION
  Report Type: Report from Study
  Country: CA (occurrence: CA)
  Receive Date: 20201117
  Receipt Date: 20201201
  Transmission Date: 20210114
  Serious: Yes (Death, Hospitalization)
  Sender: FDA-Public Use
  Company Number: CA-UCBSA-2020038971

PATIENT
  Age: 83 Year
  Sex: Female

DRUGS (2)
  1. CERTOLIZUMAB PEGOL [Suspect]
     Active Substance: CERTOLIZUMAB PEGOL
     Dosage: 200 MILLIGRAM, EV 2 WEEKS(QOW)
     Route: 058
     Dates: start: 20190119, end: 202010
  2. CERTOLIZUMAB PEGOL [Suspect]
     Active Substance: CERTOLIZUMAB PEGOL
     Indication: RHEUMATOID ARTHRITIS
     Dosage: 400 MILLIGRAM, EV 2 WEEKS(QOW)
     Route: 058
     Dates: start: 20181022, end: 20190105

REACTIONS (6)
  - Oxygen saturation decreased [Unknown]
  - SARS-CoV-2 test negative [Unknown]
  - Cough [Unknown]
  - Cystitis [Unknown]
  - Death [Fatal]
  - Poor quality sleep [Unknown]

NARRATIVE: CASE EVENT DATE: 20201031
